FAERS Safety Report 7953765-6 (Version None)
Quarter: 2011Q4

REPORT INFORMATION
  Report Type: 
  Country: None (occurrence: None)
  Receive Date: 20111202
  Receipt Date: 20111130
  Transmission Date: 20120403
  Serious: Yes (Other)
  Sender: FDA-Public Use
  Company Number: US-PFIZER INC-2011292598

PATIENT
  Age: 50 Year
  Sex: Male
  Weight: 104 kg

DRUGS (11)
  1. TIKOSYN [Suspect]
     Dosage: 500 UG, 2X/DAY
  2. ALDACTONE [Concomitant]
     Dosage: UNK
  3. ALLOPURINOL [Concomitant]
     Dosage: UNK
  4. BUMETANIDE [Concomitant]
     Dosage: UNK
  5. TIKOSYN [Suspect]
     Dosage: UNK, ACCIDENTLY TOOK TWENTY 0.25MG CAPSULES
     Dates: start: 20111129, end: 20111129
  6. ASPIRIN [Concomitant]
     Dosage: 81 MG, DAILY
  7. COLCHICINE [Concomitant]
     Dosage: UNK
  8. HYDRALAZINE [Concomitant]
     Dosage: UNK
  9. PERCOCET [Concomitant]
     Dosage: UNK
  10. QUINIDINE [Concomitant]
     Dosage: 7 MG, DAILY
  11. XANAX [Concomitant]
     Dosage: UNK

REACTIONS (2)
  - HEART RATE ABNORMAL [None]
  - INCORRECT DOSE ADMINISTERED [None]
